FAERS Safety Report 20727149 (Version 1)
Quarter: 2022Q2

REPORT INFORMATION
  Report Type: Spontaneous
  Country: CN (occurrence: CN)
  Receive Date: 20220419
  Receipt Date: 20220419
  Transmission Date: 20220720
  Serious: Yes (Other)
  Sender: FDA-Public Use
  Company Number: CN-009507513-2204CHN004859

PATIENT
  Age: 57 Year
  Sex: Male
  Weight: 62.4 kg

DRUGS (6)
  1. CILASTATIN SODIUM\IMIPENEM [Suspect]
     Active Substance: CILASTATIN SODIUM\IMIPENEM
     Indication: Cellulitis
     Dosage: 0.5 GRAM, Q8H
     Route: 041
     Dates: start: 20220325, end: 20220328
  2. CILASTATIN SODIUM\IMIPENEM [Suspect]
     Active Substance: CILASTATIN SODIUM\IMIPENEM
     Indication: Anti-infective therapy
  3. CEFUROXIME SODIUM [Concomitant]
     Active Substance: CEFUROXIME SODIUM
     Indication: Cellulitis
     Dosage: 1.5 GRAM, Q12H
     Route: 041
     Dates: start: 20220317, end: 20220325
  4. CEFUROXIME SODIUM [Concomitant]
     Active Substance: CEFUROXIME SODIUM
     Indication: Anti-infective therapy
  5. SODIUM CHLORIDE [Concomitant]
     Active Substance: SODIUM CHLORIDE
     Indication: Medication dilution
     Dosage: 100 ML, Q12H
     Route: 041
     Dates: start: 20220317, end: 20220325
  6. SODIUM CHLORIDE [Concomitant]
     Active Substance: SODIUM CHLORIDE
     Indication: Anti-infective therapy
     Dosage: 100 ML, Q8H
     Route: 041
     Dates: start: 20220325, end: 20220328

REACTIONS (14)
  - Mental disorder [Recovered/Resolved]
  - Delirium [Recovered/Resolved]
  - Hallucination [Unknown]
  - Logorrhoea [Unknown]
  - Disorganised speech [Unknown]
  - Personality change [Unknown]
  - Persecutory delusion [Unknown]
  - Moaning [Unknown]
  - Appetite disorder [Unknown]
  - Pupillary disorder [Unknown]
  - Affect lability [Unknown]
  - Loss of consciousness [Unknown]
  - Agitation [Unknown]
  - Confusional state [Unknown]

NARRATIVE: CASE EVENT DATE: 20220326
